FAERS Safety Report 9658843 (Version 2)
Quarter: 2013Q4

REPORT INFORMATION
  Report Type: Spontaneous
  Country: US (occurrence: US)
  Receive Date: 20131030
  Receipt Date: 20131030
  Transmission Date: 20140711
  Serious: No
  Sender: FDA-Public Use
  Company Number: US-PURDUE-USA-2011-0075877

PATIENT
  Age: 45 Year
  Sex: Male

DRUGS (2)
  1. OXYCONTIN (NDA 22-272) [Suspect]
     Indication: BACK PAIN
     Dosage: 3-4 TABLETS DAILY
     Route: 048
     Dates: start: 20110926
  2. NORCO [Concomitant]
     Indication: BACK PAIN
     Dosage: 1 TABLET 10/325 MG , Q4H
     Route: 048
     Dates: start: 200903, end: 201112

REACTIONS (2)
  - Foreign body [Recovered/Resolved]
  - Unevaluable event [Unknown]
